FAERS Safety Report 17204928 (Version 1)
Quarter: 2019Q4

REPORT INFORMATION
  Report Type: Spontaneous
  Country: DE (occurrence: DE)
  Receive Date: 20191227
  Receipt Date: 20191227
  Transmission Date: 20200122
  Serious: Yes (Death, Other)
  Sender: FDA-Public Use
  Company Number: DE-PIRAMAL ENTERPRISES LIMITED-2019-PEL-000482

PATIENT

DRUGS (13)
  1. ALFENTANIL. [Concomitant]
     Active Substance: ALFENTANIL
     Indication: ANAESTHESIA
     Dosage: 200 MICROGRAM
     Route: 065
  2. ATROPINE. [Concomitant]
     Active Substance: ATROPINE
     Indication: PRODUCT USED FOR UNKNOWN INDICATION
     Dosage: 0.5 MILLIGRAM
     Route: 065
  3. NALOXONE [Concomitant]
     Active Substance: NALOXONE
     Indication: PRODUCT USED FOR UNKNOWN INDICATION
     Dosage: 0.1 MILLIGRAM
     Route: 065
  4. FLUMAZENIL. [Concomitant]
     Active Substance: FLUMAZENIL
     Indication: PRODUCT USED FOR UNKNOWN INDICATION
     Dosage: 0.4 MILLIGRAM
     Route: 065
  5. ALFENTANIL. [Concomitant]
     Active Substance: ALFENTANIL
     Dosage: 1400 MILLIGRAM
     Route: 065
  6. SUXAMETHONIUM [Concomitant]
     Active Substance: SUCCINYLCHOLINE
     Indication: HYPOTONIA
     Dosage: 100 MILLIGRAM
     Route: 065
  7. CLORAZEPATE DIPOTASSIUM. [Concomitant]
     Active Substance: CLORAZEPATE DIPOTASSIUM
     Indication: PRODUCT USED FOR UNKNOWN INDICATION
     Dosage: 50 MILLIGRAM
     Route: 048
  8. ALCURONIUM. [Concomitant]
     Active Substance: ALCURONIUM
     Dosage: 12 MILLIGRAM
     Route: 065
  9. PIRITRAMIDE [Concomitant]
     Active Substance: PIRITRAMIDE
     Indication: PRODUCT USED FOR UNKNOWN INDICATION
     Dosage: UNK
     Route: 065
  10. ISOFLURANE. [Suspect]
     Active Substance: ISOFLURANE
     Indication: ANAESTHESIA
     Dosage: 0.25-1 VOL %
  11. THIOPENTONE                        /00053401/ [Concomitant]
     Active Substance: THIOPENTAL
     Indication: ANAESTHESIA
     Dosage: 300 MILLIGRAM
     Route: 065
  12. ALCURONIUM. [Concomitant]
     Active Substance: ALCURONIUM
     Indication: HYPOTONIA
     Dosage: 8 MILLIGRAM
     Route: 065
  13. NEOSTIGMINE. [Concomitant]
     Active Substance: NEOSTIGMINE METHYLSULFATE
     Indication: PRODUCT USED FOR UNKNOWN INDICATION
     Dosage: 1.0 MILLIGRAM
     Route: 065

REACTIONS (6)
  - Acute hepatic failure [Fatal]
  - Hepatic necrosis [Fatal]
  - Coma [Fatal]
  - Seizure [Fatal]
  - Brain death [Fatal]
  - Ascites [Fatal]
